FAERS Safety Report 6505781-9 (Version None)
Quarter: 2009Q4

REPORT INFORMATION
  Report Type: 
  Country: None (occurrence: None)
  Receive Date: 20091217
  Receipt Date: 20091217
  Transmission Date: 20100525
  Serious: Yes (Hospitalization)
  Sender: FDA-Public Use
  Company Number: None

PATIENT
  Sex: Female
  Weight: 61 kg

DRUGS (2)
  1. CISPLATIN [Suspect]
     Dosage: 123 MG
     Dates: end: 20091209
  2. PACLITAXEL [Suspect]
     Dosage: 220 MG
     Dates: end: 20091208

REACTIONS (4)
  - ABDOMINAL RIGIDITY [None]
  - DEHYDRATION [None]
  - NAUSEA [None]
  - VOMITING [None]
